FAERS Safety Report 5848616-X (Version None)
Quarter: 2008Q3

REPORT INFORMATION
  Report Type: 
  Country: None (occurrence: None)
  Receive Date: 20080814
  Receipt Date: 20080731
  Transmission Date: 20090109
  Serious: Yes (Life-Threatening, Hospitalization)
  Sender: FDA-Public Use
  Company Number: 2008S1008480

PATIENT
  Age: 79 Year
  Sex: Male

DRUGS (10)
  1. FLUCONAZOLE [Suspect]
     Indication: DRUG USE FOR UNKNOWN INDICATION
     Dosage: UNKNOWN
     Route: 048
  2. SIMVASTATIN [Suspect]
     Indication: DRUG USE FOR UNKNOWN INDICATION
     Dosage: UNKNOWN
  3. THIAMINE HCL [Concomitant]
  4. INSULIN [Concomitant]
  5. LISINOPRIL [Concomitant]
  6. TERAZOSIN HCL [Concomitant]
  7. TOLTERODINE TARTRATE [Concomitant]
  8. GOSERELIN [Concomitant]
  9. MOMETASONE FUROATE [Concomitant]
  10. FOLIC ACID [Concomitant]

REACTIONS (11)
  - CEREBRAL ATROPHY [None]
  - CEREBROVASCULAR ACCIDENT [None]
  - DRUG INTERACTION [None]
  - DYSPHAGIA [None]
  - HAEMOGLOBIN DECREASED [None]
  - MASTICATION DISORDER [None]
  - NAUSEA [None]
  - RENAL FAILURE ACUTE [None]
  - RHABDOMYOLYSIS [None]
  - SPEECH DISORDER [None]
  - VOMITING [None]
